FAERS Safety Report 8767504 (Version 1)
Quarter: 2012Q4

REPORT INFORMATION
  Report Type: 
  Country: US (occurrence: US)
  Receive Date: 20120904
  Receipt Date: 20120904
  Transmission Date: 20130627
  Serious: Yes (Other)
  Sender: FDA-Public Use
  Company Number: US-BAYER-2012-089630

PATIENT
  Age: 40 Year
  Sex: Female

DRUGS (2)
  1. MIRENA [Suspect]
     Indication: CONTRACEPTION
     Dosage: 20 mcg/24hr, CONT
     Route: 015
     Dates: start: 200811, end: 200905
  2. MIRENA [Suspect]
     Indication: MENORRHAGIA

REACTIONS (9)
  - Genital haemorrhage [None]
  - Abdominal pain [None]
  - Nausea [None]
  - Headache [Not Recovered/Not Resolved]
  - Pain [None]
  - Galactorrhoea [Not Recovered/Not Resolved]
  - Fatigue [None]
  - Premature menopause [None]
  - Abdominal distension [Not Recovered/Not Resolved]
